FAERS Safety Report 24432480 (Version 1)
Quarter: 2024Q4

REPORT INFORMATION
  Report Type: Spontaneous
  Country: ZA (occurrence: ZA)
  Receive Date: 20241014
  Receipt Date: 20241014
  Transmission Date: 20250115
  Serious: Yes (Other)
  Sender: MACLEODS
  Company Number: ZA-MACLEODS PHARMA-MAC2024049779

PATIENT

DRUGS (31)
  1. HYDROCHLOROTHIAZIDE\VALSARTAN [Suspect]
     Active Substance: HYDROCHLOROTHIAZIDE\VALSARTAN
     Indication: Hypertension
     Dosage: 80/12.5 MG TAKE ONE TABLET DAILY (24 HOURLY) IN THE MORNING
     Route: 048
  2. ACETAMINOPHEN\TRAMADOL [Suspect]
     Active Substance: ACETAMINOPHEN\TRAMADOL
     Indication: Pain
     Dosage: TAKE TWO TABLETS IF NECESSARY
     Route: 048
  3. ACETAMINOPHEN\TRAMADOL [Suspect]
     Active Substance: ACETAMINOPHEN\TRAMADOL
     Dosage: TAKE TWO TABLETS IF NECESSARY FOR PAIN
     Route: 048
  4. ACETAMINOPHEN\ASCORBIC ACID\CHLORPHENIRAMINE MALEATE [Suspect]
     Active Substance: ACETAMINOPHEN\ASCORBIC ACID\CHLORPHENIRAMINE MALEATE
     Indication: Product used for unknown indication
     Dosage: TAKE ONE  DISSOLVED IN WATER TWICE A DAY (12 HOURLY)
     Route: 048
  5. CLARITHROMYCIN [Suspect]
     Active Substance: CLARITHROMYCIN
     Indication: Product used for unknown indication
     Dosage: 500 MG TAKE ONE TABLET DAILY (24 HOURLY)
     Route: 048
  6. ACETYLCYSTEINE [Suspect]
     Active Substance: ACETYLCYSTEINE
     Indication: Product used for unknown indication
     Dosage: 200 MG TAKE ONE DISSOLVED IN WATER DAILY (24 HOURLY)
     Route: 048
  7. METRONIDAZOLE [Suspect]
     Active Substance: METRONIDAZOLE
     Indication: Product used for unknown indication
     Dosage: 400 MG TAKE ONE TABLET TWICE A DAY (12 HOURLY)
     Route: 065
  8. PROBIOTICS NOS [Suspect]
     Active Substance: PROBIOTICS NOS
     Indication: Product used for unknown indication
     Dosage: CHEW ONE TABLET TWICE A DAY (12 HOURLY)
     Route: 065
  9. NYSTATIN [Suspect]
     Active Substance: NYSTATIN
     Indication: Product used for unknown indication
     Dosage: 100000 U AS PER PACKAGE INSERT
     Route: 065
  10. ALLOPURINOL [Suspect]
     Active Substance: ALLOPURINOL
     Indication: Gout
     Dosage: 300 MG TAKE ONE TABLET DAILY (24 HOURLY)
     Route: 065
  11. ALLOPURINOL [Suspect]
     Active Substance: ALLOPURINOL
     Indication: Prophylaxis
  12. ZOLPIDEM TARTRATE [Suspect]
     Active Substance: ZOLPIDEM TARTRATE
     Indication: Insomnia
     Dosage: 10 MG TAKE ONE TABLET AT NIGHT
     Route: 065
  13. DIFLUCORTOLONE VALERATE\ISOCONAZOLE NITRATE [Suspect]
     Active Substance: DIFLUCORTOLONE VALERATE\ISOCONAZOLE NITRATE
     Indication: Product used for unknown indication
     Dosage: APPLY DAILY
     Route: 061
  14. FLUOXETINE HYDROCHLORIDE [Suspect]
     Active Substance: FLUOXETINE HYDROCHLORIDE
     Indication: Depression
     Route: 048
  15. VITAMINS [Suspect]
     Active Substance: VITAMINS
     Indication: Blood cholesterol
     Dosage: 40 MG TAKE ONE TABLET AT NIGHT
     Route: 048
  16. VITAMINS [Suspect]
     Active Substance: VITAMINS
     Dosage: 20 MG TAKE  ONE TABLET  AT NIGHT
     Route: 048
  17. HYDROCHLOROTHIAZIDE\LOSARTAN POTASSIUM [Suspect]
     Active Substance: HYDROCHLOROTHIAZIDE\LOSARTAN POTASSIUM
     Indication: Hypertension
     Dosage: 100/25 MG TAKE ONE TABLET DAILY (24 HOURLY)
     Route: 048
  18. EUTHYROX [Suspect]
     Active Substance: LEVOTHYROXINE SODIUM
     Indication: Hypothyroidism
     Dosage: 100 MCG TAKE ONE TABLET DAILY (24 HOURLY)
     Route: 048
  19. BUPROPION HYDROCHLORIDE [Suspect]
     Active Substance: BUPROPION HYDROCHLORIDE
     Indication: Depression
     Dosage: 150 MG TAKE ONE TABLET DAILY (24 HOURLY)
     Route: 048
  20. SACUBITRIL\VALSARTAN [Suspect]
     Active Substance: SACUBITRIL\VALSARTAN
     Indication: Cardiac failure
     Dosage: 100 MG TAKE ONE TABLET TWICE A DAY (12 HOURLY
     Route: 048
  21. SACUBITRIL\VALSARTAN [Suspect]
     Active Substance: SACUBITRIL\VALSARTAN
     Dosage: 50 MG TAKE ONE TABLET TWICE A DAY (12 HOURLY)
     Route: 048
  22. LEVOTHYROXINE SODIUM [Suspect]
     Active Substance: LEVOTHYROXINE SODIUM
     Indication: Hypothyroidism
     Dosage: 100 MCG TAKE ONE TABLET DAILY (24 HOURLY)
     Route: 048
  23. SPIRONOLACTONE [Suspect]
     Active Substance: SPIRONOLACTONE
     Indication: Hypertension
     Dosage: 25 MG TAKE ONE TABLET DAILY (24 HOURLY)
     Route: 048
  24. FUROSEMIDE [Suspect]
     Active Substance: FUROSEMIDE
     Indication: Hypertension
     Dosage: 40 MG TAKE ONE TABLET IN THE MORNING AND HALF AT NOON
     Route: 048
  25. CLOTRIMAZOLE [Suspect]
     Active Substance: CLOTRIMAZOLE
     Indication: Product used for unknown indication
     Dosage: 20 MG USE AS PER PACKAGE INSERT
     Route: 048
  26. BUDESONIDE\FORMOTEROL FUMARATE [Suspect]
     Active Substance: BUDESONIDE\FORMOTEROL FUMARATE
     Indication: Asthma
     Dosage: 160/4.5 MCG TAKE ONE PUFF TWICE A DAY (12 HOURLY)
     Route: 048
  27. MONTELUKAST SODIUM [Suspect]
     Active Substance: MONTELUKAST SODIUM
     Indication: Asthma
     Dosage: 10 MG TAKE ONE TABLET AT NIGHT
     Route: 048
  28. DAPAGLIFLOZIN PROPANEDIOL [Suspect]
     Active Substance: DAPAGLIFLOZIN PROPANEDIOL
     Indication: Diabetes mellitus
     Dosage: 10 MG TAKE ONE TABLET DAILY (24 HOURLY)
     Route: 048
  29. PREDNISONE [Suspect]
     Active Substance: PREDNISONE
     Indication: Product used for unknown indication
     Dosage: 5 MG TAKE 8 TABLETS IN THE MORNING
     Route: 048
  30. IVABRADINE HYDROCHLORIDE [Suspect]
     Active Substance: IVABRADINE HYDROCHLORIDE
     Indication: Angina pectoris
     Dosage: 7.5 MG  TAKE ONE TABLET TWICE A DAY (12 HOURLY)
     Route: 048
  31. POTASSIUM CHLORIDE [Suspect]
     Active Substance: POTASSIUM CHLORIDE
     Indication: Hypokalaemia
     Dosage: 600 MG TAKE ONE TABLET DAILY (24 HOURLY)
     Route: 048

REACTIONS (4)
  - Lower respiratory tract infection [Unknown]
  - Influenza [Unknown]
  - Illness [Unknown]
  - Dysarthria [Unknown]
